FAERS Safety Report 7999112-5 (Version None)
Quarter: 2011Q4

REPORT INFORMATION
  Report Type: 
  Country: None (occurrence: None)
  Receive Date: 20111221
  Receipt Date: 20111207
  Transmission Date: 20120403
  Serious: Yes (Other)
  Sender: FDA-Public Use
  Company Number: CA-PFIZER INC-2011248283

PATIENT
  Age: 65 Year
  Sex: Female

DRUGS (16)
  1. NORVASC [Concomitant]
     Dosage: UNK
     Route: 048
     Dates: end: 20111018
  2. NEXIUM [Concomitant]
     Dosage: 40 MG, 2X/DAY
     Route: 048
     Dates: start: 20111017
  3. SYNTHROID [Concomitant]
     Dosage: 0.2 MG, UNK
     Route: 048
     Dates: start: 20100901
  4. CORDARONE [Suspect]
     Dosage: 200 MG, DAILY
     Route: 048
     Dates: start: 20110901
  5. COUMADIN [Concomitant]
     Dosage: 2 MG, 1X/DAY
     Route: 048
     Dates: start: 20071001
  6. SYNTHROID [Concomitant]
     Dosage: 0.175 MG, UNK
     Route: 048
     Dates: start: 20090101
  7. XALATAN [Concomitant]
     Dosage: UNK
  8. SYMBICORT [Concomitant]
     Dosage: 200 UG, 2X/DAY
     Route: 055
     Dates: start: 20080101
  9. CORDARONE [Suspect]
     Dosage: 200 MG, 1X/DAY
     Route: 048
     Dates: start: 20070101, end: 20100101
  10. EZETIMIBE [Concomitant]
     Dosage: 10 MG, 1X/DAY AT BEDTIME
     Route: 048
     Dates: start: 20070601
  11. COLACE [Concomitant]
     Dosage: 100 MG, 2 CAPSULES 2X/DAY AS NEEDED
     Route: 048
     Dates: start: 20081201
  12. DIOVAN HCT [Concomitant]
     Dosage: 160/25 IN THE MORNING
     Route: 048
     Dates: start: 20070601
  13. BIAXIN [Suspect]
     Dosage: 1 DF, 2X/DAY
     Route: 065
     Dates: start: 20111003, end: 20111011
  14. CALCIUM [Concomitant]
     Dosage: UNK
  15. TOLOXIN [Concomitant]
     Dosage: 0.25 MG, 1X/DAY IN THE MORNING
     Route: 048
     Dates: start: 20070601
  16. LATANOPROST [Concomitant]
     Dosage: 1 GTT, 1X/DAY
     Route: 047
     Dates: start: 20111019

REACTIONS (3)
  - PARAESTHESIA [None]
  - THROAT IRRITATION [None]
  - RASH GENERALISED [None]
